FAERS Safety Report 8168178-4 (Version None)
Quarter: 2012Q1

REPORT INFORMATION
  Report Type: 
  Country: None (occurrence: None)
  Receive Date: 20120227
  Receipt Date: 20120216
  Transmission Date: 20120608
  Serious: Yes (Hospitalization)
  Sender: FDA-Public Use
  Company Number: US-SANOFI-AVENTIS-2012SA010331

PATIENT
  Sex: Male

DRUGS (1)
  1. PLAVIX [Suspect]

REACTIONS (2)
  - PAIN [None]
  - DRUG INEFFECTIVE [None]
